FAERS Safety Report 18304888 (Version 3)
Quarter: 2020Q4

REPORT INFORMATION
  Report Type: Spontaneous
  Country: US (occurrence: US)
  Receive Date: 20200923
  Receipt Date: 20201015
  Transmission Date: 20210113
  Serious: Yes (Other)
  Sender: FDA-Public Use
  Company Number: US-PFIZER INC-2020363935

PATIENT
  Age: 18 Year
  Sex: Female
  Weight: 44.2 kg

DRUGS (2)
  1. MORPHINE SULFATE. [Suspect]
     Active Substance: MORPHINE SULFATE
     Indication: ORAL PAIN
     Dosage: UNK, AS NEEDED
  2. OXYCODONE [Suspect]
     Active Substance: OXYCODONE
     Indication: ORAL PAIN
     Dosage: UNK, AS NEEDED

REACTIONS (1)
  - Drug ineffective [Unknown]
